APPROVED DRUG PRODUCT: ALPHATREX
Active Ingredient: BETAMETHASONE DIPROPIONATE
Strength: EQ 0.05% BASE
Dosage Form/Route: OINTMENT;TOPICAL
Application: N019143 | Product #001
Applicant: SAVAGE LABORATORIES INC DIV ALTANA INC
Approved: Sep 4, 1984 | RLD: No | RS: No | Type: DISCN